FAERS Safety Report 6165382-1 (Version None)
Quarter: 2009Q2

REPORT INFORMATION
  Report Type: 
  Country: None (occurrence: None)
  Receive Date: 20090423
  Receipt Date: 20090416
  Transmission Date: 20091009
  Serious: Yes (Disabling)
  Sender: FDA-Public Use
  Company Number: JP-BRISTOL-MYERS SQUIBB COMPANY-14509046

PATIENT
  Age: 66 Year
  Sex: Male
  Weight: 48 kg

DRUGS (10)
  1. ERBITUX [Suspect]
     Indication: COLORECTAL CANCER RECURRENT
     Dosage: 2ND:(250MG/M2)25NOV08;3RD:02DEC,4TH:09DEC,5TH:16DEC;6TH:24DEC08;8TH:08JAN09;9TH:15JAN;10TH:22JAN
     Route: 042
     Dates: start: 20081118
  2. OXYCONTIN [Suspect]
     Indication: CANCER PAIN
     Dosage: 240 MG/DAY ORAL SINCE 27NOV2008.
     Route: 048
     Dates: start: 20080424
  3. POLARAMINE [Concomitant]
     Indication: COLORECTAL CANCER RECURRENT
     Route: 042
  4. POLARAMINE [Concomitant]
     Indication: PREMEDICATION
     Route: 042
  5. DECADRON [Concomitant]
     Indication: PREMEDICATION
     Route: 042
     Dates: start: 20081118
  6. HYPEN [Concomitant]
     Indication: CANCER PAIN
     Dosage: TABLET
     Route: 048
     Dates: start: 20080416
  7. RHYTHMY [Concomitant]
     Indication: INSOMNIA
     Dosage: TABLET
     Route: 048
     Dates: start: 20080819
  8. MAGMITT [Concomitant]
     Dosage: TABLET
     Route: 048
  9. FERROMIA [Concomitant]
     Indication: ANAEMIA
     Dosage: TABLET
     Route: 048
     Dates: start: 20080819
  10. CYANOCOBALAMIN [Concomitant]
     Dosage: TABLET
     Route: 048

REACTIONS (1)
  - COGNITIVE DISORDER [None]
